FAERS Safety Report 6238513-2 (Version None)
Quarter: 2009Q2

REPORT INFORMATION
  Report Type: 
  Country: None (occurrence: None)
  Receive Date: 20090622
  Receipt Date: 20090615
  Transmission Date: 20091009
  Serious: Yes (Death)
  Sender: FDA-Public Use
  Company Number: US-ELI_LILLY_AND_COMPANY-US200906003422

PATIENT
  Sex: Female

DRUGS (1)
  1. HUMULIN R [Suspect]
     Dosage: 100 U, AS NEEDED

REACTIONS (1)
  - DEATH [None]
